FAERS Safety Report 5505558-7 (Version None)
Quarter: 2007Q4

REPORT INFORMATION
  Report Type: 
  Country: None (occurrence: None)
  Receive Date: 20071102
  Receipt Date: 20071019
  Transmission Date: 20080405
  Serious: Yes (Other)
  Sender: FDA-Public Use
  Company Number: US-ASTRAZENECA-2007UW18680

PATIENT
  Age: 47 Year
  Sex: Female
  Weight: 118.2 kg

DRUGS (2)
  1. SEROQUEL [Suspect]
     Indication: DEPRESSION
     Route: 048
     Dates: start: 19980101, end: 20040601
  2. ZYPREXA [Concomitant]
     Indication: DEPRESSION

REACTIONS (3)
  - CEREBROVASCULAR ACCIDENT [None]
  - DIABETES MELLITUS [None]
  - MYOCARDIAL INFARCTION [None]
